FAERS Safety Report 23449512 (Version 1)
Quarter: 2024Q1

REPORT INFORMATION
  Report Type: Spontaneous
  Country: GB (occurrence: GB)
  Receive Date: 20240129
  Receipt Date: 20240129
  Transmission Date: 20240410
  Serious: Yes (Other)
  Sender: FDA-Public Use
  Company Number: GB-AstraZeneca-2023A047168

PATIENT

DRUGS (1)
  1. GEFITINIB [Suspect]
     Active Substance: GEFITINIB
     Indication: Product used for unknown indication
     Dosage: UNK
     Route: 048
     Dates: start: 201907, end: 202109

REACTIONS (1)
  - Malignant neoplasm progression [Unknown]
